FAERS Safety Report 6772658-3 (Version None)
Quarter: 2010Q2

REPORT INFORMATION
  Report Type: 
  Country: None (occurrence: None)
  Receive Date: 20100616
  Receipt Date: 20100201
  Transmission Date: 20101027
  Serious: No
  Sender: FDA-Public Use
  Company Number: US-ASTRAZENECA-2009SE33723

PATIENT
  Age: 82 Year
  Sex: Female
  Weight: 65.3 kg

DRUGS (1)
  1. PULMICORT FLEXHALER [Suspect]
     Dosage: 3 PUFFS IN THE AM, MID MORNING AND AGAIN IN THE EVENING
     Route: 055

REACTIONS (5)
  - ASTHMA [None]
  - DRUG INEFFECTIVE [None]
  - DYSPNOEA [None]
  - EXPIRED DRUG ADMINISTERED [None]
  - PRODUCTIVE COUGH [None]
